FAERS Safety Report 4986498-9 (Version None)
Quarter: 2006Q2

REPORT INFORMATION
  Report Type: 
  Country: None (occurrence: None)
  Receive Date: 20060424
  Receipt Date: 20060412
  Transmission Date: 20061013
  Serious: Yes (Hospitalization)
  Sender: FDA-Public Use
  Company Number: 2006-00845

PATIENT
  Age: 40 Year
  Sex: Male
  Weight: 73.5 kg

DRUGS (6)
  1. VELCADE [Suspect]
     Indication: NON-SMALL CELL LUNG CANCER
     Dosage: 1.30 MG/M2, UNK, INTRAVENOUS
     Route: 042
     Dates: start: 20060327, end: 20060406
  2. ALIMTA [Suspect]
     Indication: NON-SMALL CELL LUNG CANCER
     Dosage: 500.00 MG/M2, UNK, INTRAVENOUS
     Route: 042
     Dates: start: 20060327, end: 20060327
  3. OXYCONTIN [Concomitant]
  4. MEGACE [Concomitant]
  5. ATIVAN [Concomitant]
  6. MORPHINE SULFATE [Concomitant]

REACTIONS (7)
  - ABDOMINAL DISCOMFORT [None]
  - ALANINE AMINOTRANSFERASE INCREASED [None]
  - ASPARTATE AMINOTRANSFERASE INCREASED [None]
  - CHEST DISCOMFORT [None]
  - DEHYDRATION [None]
  - NAUSEA [None]
  - VOMITING [None]
